FAERS Safety Report 22202150 (Version 1)
Quarter: 2023Q2

REPORT INFORMATION
  Report Type: Spontaneous
  Country: US (occurrence: None)
  Receive Date: 20230411
  Receipt Date: 20230411
  Transmission Date: 20230721
  Serious: Yes (Other)
  Sender: FDA-Public Use
  Company Number: None

PATIENT
  Age: 74 Year
  Sex: Male
  Weight: 79.38 kg

DRUGS (11)
  1. ARTIFICIAL EYE [Suspect]
     Active Substance: MINERAL OIL\PETROLATUM
     Indication: Eye irritation
     Dosage: FREQUENCY : AS NEEDED;?
     Route: 031
     Dates: start: 20230109, end: 20230314
  2. METOPROLOL SUCCINATE [Concomitant]
     Active Substance: METOPROLOL SUCCINATE
  3. ATORVASTATIN [Concomitant]
     Active Substance: ATORVASTATIN
  4. LISINOPRIL [Concomitant]
     Active Substance: LISINOPRIL
  5. TAMSULOSIN [Concomitant]
     Active Substance: TAMSULOSIN
  6. GABAPINTEN [Concomitant]
  7. ERYTHROMYCIN [Concomitant]
     Active Substance: ERYTHROMYCIN
  8. ONE A DAY PROACTIVE 65+ [Concomitant]
  9. GLUCOSAMINE HCL WITH MSN [Concomitant]
  10. PSYLLIUM FIBER CAPSULES [Concomitant]
  11. ASPIRIN [Concomitant]

REACTIONS (3)
  - Drug ineffective [None]
  - Implant site infection [None]
  - Recalled product administered [None]

NARRATIVE: CASE EVENT DATE: 20230128
